FAERS Safety Report 10380684 (Version 1)
Quarter: 2014Q3

REPORT INFORMATION
  Report Type: Spontaneous
  Country: US (occurrence: None)
  Receive Date: 20140812
  Receipt Date: 20140812
  Transmission Date: 20150326
  Serious: Yes (Other)
  Sender: FDA-Public Use
  Company Number: None

PATIENT
  Age: 65 Year
  Sex: Male
  Weight: 80.74 kg

DRUGS (2)
  1. TRILYTE [Suspect]
     Active Substance: POLYETHYLENE GLYCOL 3350\POTASSIUM CHLORIDE\SODIUM BICARBONATE\SODIUM CHLORIDE
     Indication: BOWEL PREPARATION
     Dosage: 6-8 OZ GLASSES 2 HOUR PERIOD
     Dates: start: 20140204
  2. TRILYTE [Suspect]
     Active Substance: POLYETHYLENE GLYCOL 3350\POTASSIUM CHLORIDE\SODIUM BICARBONATE\SODIUM CHLORIDE
     Indication: COLONOSCOPY
     Dosage: 6-8 OZ GLASSES 2 HOUR PERIOD
     Dates: start: 20140204

REACTIONS (4)
  - Ear pain [None]
  - Feeling hot [None]
  - Blood pressure increased [None]
  - Deafness [None]

NARRATIVE: CASE EVENT DATE: 20140205
